FAERS Safety Report 24924799 (Version 1)
Quarter: 2025Q1

REPORT INFORMATION
  Report Type: Report from Study
  Country: US (occurrence: US)
  Receive Date: 20250204
  Receipt Date: 20250204
  Transmission Date: 20250408
  Serious: No
  Sender: EXELIXIS
  Company Number: US-EXELIXIS-CABO-24075827

PATIENT
  Age: 51 Year
  Sex: Male

DRUGS (4)
  1. CABOMETYX [Suspect]
     Active Substance: CABOZANTINIB S-MALATE
     Indication: Carcinoma in situ
     Dosage: 40 MG, QD
     Route: 048
     Dates: start: 20240305
  2. ELIQUIS [Concomitant]
     Active Substance: APIXABAN
  3. FARXIGA [Concomitant]
     Active Substance: DAPAGLIFLOZIN PROPANEDIOL
  4. OZEMPIC [Concomitant]
     Active Substance: SEMAGLUTIDE

REACTIONS (2)
  - Groin pain [Unknown]
  - Off label use [Unknown]

NARRATIVE: CASE EVENT DATE: 20240316
